FAERS Safety Report 5503777-7 (Version None)
Quarter: 2007Q4

REPORT INFORMATION
  Report Type: 
  Country: None (occurrence: None)
  Receive Date: 20071101
  Receipt Date: 20071029
  Transmission Date: 20080405
  Serious: Yes (Hospitalization, Other)
  Sender: FDA-Public Use
  Company Number: US-BRISTOL-MYERS SQUIBB COMPANY-13959457

PATIENT
  Age: 61 Year
  Sex: Female
  Weight: 104 kg

DRUGS (4)
  1. SINEMET [Suspect]
     Indication: DYSTONIA
     Route: 048
  2. ALLEGRA [Concomitant]
     Route: 048
  3. VALIUM [Concomitant]
     Route: 048
  4. ESTRATEST H.S. [Concomitant]
     Route: 048

REACTIONS (4)
  - CARDIAC FAILURE [None]
  - FACIAL PALSY [None]
  - FALL [None]
  - RESPIRATORY FAILURE [None]
